FAERS Safety Report 7532848-9 (Version None)
Quarter: 2011Q2

REPORT INFORMATION
  Report Type: 
  Country: None (occurrence: None)
  Receive Date: 20110608
  Receipt Date: 20110603
  Transmission Date: 20111010
  Serious: Yes (Death)
  Sender: FDA-Public Use
  Company Number: US-US-EMD SERONO, INC.-7049504

PATIENT
  Sex: Male
  Weight: 119 kg

DRUGS (8)
  1. REBIF [Suspect]
     Indication: RELAPSING-REMITTING MULTIPLE SCLEROSIS
     Route: 058
     Dates: start: 20060614, end: 20110101
  2. AMANTADINE HCL [Concomitant]
  3. GABAPENTIN [Concomitant]
  4. CELEXA [Concomitant]
  5. TERAZOSIN HCL [Concomitant]
  6. VESICARE [Concomitant]
     Indication: BLADDER DISORDER
  7. VITAMIN D [Concomitant]
  8. PREVACID [Concomitant]

REACTIONS (3)
  - MYOCARDIAL INFARCTION [None]
  - RELAPSING-REMITTING MULTIPLE SCLEROSIS [None]
  - CARDIAC ARREST [None]
